FAERS Safety Report 11570585 (Version 1)
Quarter: 2015Q3

REPORT INFORMATION
  Report Type: Spontaneous
  Country: US (occurrence: US)
  Receive Date: 20150916
  Receipt Date: 20150916
  Transmission Date: 20151125
  Serious: No
  Sender: FDA-Public Use
  Company Number: US-ELI_LILLY_AND_COMPANY-US200909002255

PATIENT
  Age: 66 Year
  Sex: Female

DRUGS (1)
  1. FORTEO [Suspect]
     Active Substance: TERIPARATIDE
     Dosage: UNK, UNK
     Dates: start: 200909

REACTIONS (9)
  - Eye disorder [Unknown]
  - Contusion [Unknown]
  - Ocular discomfort [Unknown]
  - Eyelid margin crusting [Unknown]
  - Irritable bowel syndrome [Unknown]
  - Eye irritation [Unknown]
  - Blepharitis [Not Recovered/Not Resolved]
  - Ocular hyperaemia [Unknown]
  - Muscle spasms [Recovered/Resolved]

NARRATIVE: CASE EVENT DATE: 200909
